FAERS Safety Report 5892153-3 (Version None)
Quarter: 2008Q3

REPORT INFORMATION
  Report Type: 
  Country: None (occurrence: None)
  Receive Date: 20080908
  Receipt Date: 20080604
  Transmission Date: 20090109
  Serious: No
  Sender: FDA-Public Use
  Company Number: 002#2#2008-00475

PATIENT
  Age: 80 Year
  Sex: Female
  Weight: 54.4316 kg

DRUGS (14)
  1. NEUPRO [Suspect]
     Indication: PARKINSON'S DISEASE
     Dosage: 4MG/24H, 1 IN 1 D, TRANSDERMAL : 6MG/24H, 1 IN 1 D, TRANSDERMAL : 2MG/24H, 1 IN 1 D, TRANSDERMAL
     Route: 062
     Dates: start: 20070701, end: 20070701
  2. NEUPRO [Suspect]
     Indication: PARKINSON'S DISEASE
     Dosage: 4MG/24H, 1 IN 1 D, TRANSDERMAL : 6MG/24H, 1 IN 1 D, TRANSDERMAL : 2MG/24H, 1 IN 1 D, TRANSDERMAL
     Route: 062
     Dates: start: 20070701, end: 20070801
  3. NEUPRO [Suspect]
     Indication: PARKINSON'S DISEASE
     Dosage: 4MG/24H, 1 IN 1 D, TRANSDERMAL : 6MG/24H, 1 IN 1 D, TRANSDERMAL : 2MG/24H, 1 IN 1 D, TRANSDERMAL
     Route: 062
     Dates: start: 20070801, end: 20070901
  4. NEUPRO [Suspect]
     Indication: PARKINSON'S DISEASE
     Dosage: 4MG/24H, 1 IN 1 D, TRANSDERMAL : 6MG/24H, 1 IN 1 D, TRANSDERMAL : 2MG/24H, 1 IN 1 D, TRANSDERMAL
     Route: 062
     Dates: start: 20070901, end: 20070901
  5. NEUPRO [Suspect]
     Indication: PARKINSON'S DISEASE
     Dosage: 4MG/24H, 1 IN 1 D, TRANSDERMAL : 6MG/24H, 1 IN 1 D, TRANSDERMAL : 2MG/24H, 1 IN 1 D, TRANSDERMAL
     Route: 062
     Dates: end: 20070901
  6. ZYRTEC [Concomitant]
  7. SEROQUEL [Concomitant]
  8. LEVODOPA [Concomitant]
  9. FOSAMAX [Concomitant]
  10. METOPROLOL TARTRATE [Concomitant]
  11. AMANTADINE [Concomitant]
  12. MIDODRINE [Concomitant]
  13. CARBIDOPA AND LEVODOPA [Concomitant]
  14. NAMENDIA [Concomitant]

REACTIONS (3)
  - DELUSIONAL DISORDER, PERSECUTORY TYPE [None]
  - HALLUCINATION [None]
  - PARKINSON'S DISEASE [None]
